FAERS Safety Report 20908078 (Version 1)
Quarter: 2022Q2

REPORT INFORMATION
  Report Type: Other
  Country: None (occurrence: GB)
  Receive Date: 20220602
  Receipt Date: 20220602
  Transmission Date: 20220721
  Serious: Yes (Other)
  Sender: FDA-Public Use
  Company Number: GB-B.Braun Medical Inc.-2129437

PATIENT
  Age: 64 Year
  Sex: Male

DRUGS (1)
  1. CEFUROXIME SODIUM [Suspect]
     Active Substance: CEFUROXIME SODIUM

REACTIONS (1)
  - Retinal toxicity [Not Recovered/Not Resolved]
